FAERS Safety Report 5453641-7 (Version None)
Quarter: 2007Q3

REPORT INFORMATION
  Report Type: 
  Country: None (occurrence: None)
  Receive Date: 20070917
  Receipt Date: 20070904
  Transmission Date: 20080115
  Serious: Yes (Hospitalization)
  Sender: FDA-Public Use
  Company Number: PHHO2007AU15059

PATIENT
  Age: 32 Year
  Sex: Male

DRUGS (4)
  1. ALDESLEUKIN [Suspect]
     Indication: HIV INFECTION
     Dosage: 9 MIU, EVERY 6-8 MONTHS
     Route: 042
     Dates: start: 19970616, end: 20070621
  2. LAMIVUDINE [Concomitant]
  3. STAVUDINE [Concomitant]
  4. DDI [Concomitant]

REACTIONS (9)
  - CHILLS [None]
  - EJACULATION DISORDER [None]
  - EPIDIDYMITIS [None]
  - HYDROCELE [None]
  - ORCHITIS [None]
  - SEPSIS [None]
  - TESTICULAR PAIN [None]
  - TESTICULAR SWELLING [None]
  - VOMITING [None]
